FAERS Safety Report 18203694 (Version 1)
Quarter: 2020Q3

REPORT INFORMATION
  Report Type: Spontaneous
  Country: US (occurrence: US)
  Receive Date: 20200827
  Receipt Date: 20200827
  Transmission Date: 20201103
  Serious: No
  Sender: FDA-Public Use
  Company Number: US-ELI_LILLY_AND_COMPANY-US202008011095

PATIENT
  Sex: Female

DRUGS (3)
  1. ACYCLOVIR [ACICLOVIR SODIUM] [Interacting]
     Active Substance: ACYCLOVIR
     Indication: SUNBURN
     Dosage: UNK, UNKNOWN
     Route: 065
  2. VALACYCLOVIR [VALACICLOVIR HYDROCHLORIDE] [Interacting]
     Active Substance: VALACYCLOVIR HYDROCHLORIDE
     Indication: SUNBURN
     Dosage: UNK, UNKNOWN
     Route: 065
  3. FORTEO [Suspect]
     Active Substance: TERIPARATIDE
     Indication: PRODUCT USED FOR UNKNOWN INDICATION
     Dosage: UNK UNK, UNKNOWN
     Route: 065
     Dates: start: 202002

REACTIONS (2)
  - Sunburn [Recovering/Resolving]
  - Inhibitory drug interaction [Unknown]

NARRATIVE: CASE EVENT DATE: 202008
